FAERS Safety Report 16010037 (Version 1)
Quarter: 2019Q1

REPORT INFORMATION
  Report Type: Report from Study
  Country: GB (occurrence: GB)
  Receive Date: 20190225
  Receipt Date: 20190225
  Transmission Date: 20190418
  Serious: Yes (Other)
  Sender: FDA-Public Use
  Company Number: GB-ROCHE-2265288

PATIENT

DRUGS (4)
  1. EPIRUBICIN [Suspect]
     Active Substance: EPIRUBICIN
     Indication: GASTROOESOPHAGEAL CANCER
     Route: 042
  2. OXALIPLATIN. [Suspect]
     Active Substance: OXALIPLATIN
     Indication: GASTROOESOPHAGEAL CANCER
     Route: 042
  3. CAPECITABINE. [Suspect]
     Active Substance: CAPECITABINE
     Indication: GASTROOESOPHAGEAL CANCER
     Route: 048
  4. OMEGAVEN [Suspect]
     Active Substance: FISH OIL
     Indication: GASTROOESOPHAGEAL CANCER
     Dosage: AT A RATE OF 2 ML/KG BODY WEIGHT FOR 4 H (I.E., 140 ML FOR 4 HOURS IN A 70 KG PATIENT)
     Route: 042

REACTIONS (23)
  - Neuropathy peripheral [Unknown]
  - Embolism [Unknown]
  - Sepsis [Unknown]
  - Thrombocytosis [Unknown]
  - Hyperglycaemia [Unknown]
  - Hypocalcaemia [Unknown]
  - Acute kidney injury [Unknown]
  - Hyponatraemia [Unknown]
  - Hypokalaemia [Unknown]
  - Blood alkaline phosphatase increased [Unknown]
  - Vomiting [Unknown]
  - Anaemia [Unknown]
  - Diarrhoea [Unknown]
  - Thrombocytopenia [Unknown]
  - Hypoalbuminaemia [Unknown]
  - Nausea [Unknown]
  - Infection [Unknown]
  - Fatigue [Unknown]
  - Constipation [Unknown]
  - Palmar-plantar erythrodysaesthesia syndrome [Unknown]
  - Leukopenia [Unknown]
  - Neutropenia [Unknown]
  - Hypercalcaemia [Unknown]
